FAERS Safety Report 12214406 (Version 4)
Quarter: 2016Q3

REPORT INFORMATION
  Report Type: Spontaneous
  Country: TW (occurrence: TW)
  Receive Date: 20160328
  Receipt Date: 20160712
  Transmission Date: 20161109
  Serious: Yes (Hospitalization, Other)
  Sender: FDA-Public Use
  Company Number: PHHY2016TW037709

PATIENT
  Age: 47 Year
  Sex: Female
  Weight: 58 kg

DRUGS (4)
  1. VOTUBIA [Suspect]
     Active Substance: EVEROLIMUS
     Indication: ANGIOMYOLIPOMA
     Dosage: 5 MG, QD
     Route: 048
     Dates: start: 20120926
  2. NORVASC [Concomitant]
     Active Substance: AMLODIPINE BESYLATE
     Indication: HYPERTENSION
     Dosage: 0.5 OT, QD
     Route: 065
     Dates: start: 20110706
  3. SENNOSIDE [Concomitant]
     Active Substance: SENNOSIDES
     Indication: CONSTIPATION
     Dosage: 2 OT, QD
     Route: 065
     Dates: start: 20110921
  4. VYTORIN [Concomitant]
     Active Substance: EZETIMIBE\SIMVASTATIN
     Indication: HYPERLIPIDAEMIA
     Dosage: 1 OT, QD
     Route: 065
     Dates: start: 20141231

REACTIONS (25)
  - Bile duct obstruction [Unknown]
  - Diabetes mellitus [Unknown]
  - Hypercholesterolaemia [Unknown]
  - Chromaturia [Unknown]
  - Ovarian cyst [Unknown]
  - Haematocrit decreased [Unknown]
  - Arteriovenous malformation [Unknown]
  - Gamma-glutamyltransferase increased [Unknown]
  - Cyst [Unknown]
  - Dilatation intrahepatic duct acquired [Unknown]
  - Abdominal pain upper [Unknown]
  - Oedema peripheral [Unknown]
  - Mean cell volume decreased [Unknown]
  - Hypertension [Unknown]
  - Platelet count increased [Unknown]
  - Biliary dilatation [Unknown]
  - Bile duct stone [Unknown]
  - Gastric ulcer [Unknown]
  - Cholelithiasis [Recovered/Resolved]
  - Haemoglobin decreased [Unknown]
  - Hepatic neoplasm [Unknown]
  - Hypertriglyceridaemia [Unknown]
  - Uterine leiomyoma [Unknown]
  - Glomerular filtration rate decreased [Unknown]
  - Mean cell haemoglobin decreased [Unknown]

NARRATIVE: CASE EVENT DATE: 20151118
